FAERS Safety Report 8518376-2 (Version None)
Quarter: 2012Q3

REPORT INFORMATION
  Report Type: 
  Country: None (occurrence: None)
  Receive Date: 20120718
  Receipt Date: 20120705
  Transmission Date: 20120928
  Serious: No
  Sender: FDA-Public Use
  Company Number: US-ASTRAZENECA-2012SE45891

PATIENT
  Age: 67 Year
  Sex: Female
  Weight: 120 kg

DRUGS (7)
  1. LISINOPRIL [Concomitant]
  2. SYMBICORT [Suspect]
     Indication: EMPHYSEMA
     Dosage: 160/4.5 MCG TWO PUFFS BID
     Route: 055
     Dates: start: 20120619
  3. ALPRAZOLAM [Concomitant]
  4. SYMBICORT [Suspect]
     Indication: CHRONIC OBSTRUCTIVE PULMONARY DISEASE
     Dosage: 160/4.5 MCG TWO PUFFS BID
     Route: 055
     Dates: start: 20120619
  5. ATENOLOL [Concomitant]
  6. SYMBICORT [Suspect]
     Indication: ASTHMA
     Dosage: 160/4.5 MCG TWO PUFFS BID
     Route: 055
     Dates: start: 20120619
  7. ASPIRIN [Concomitant]

REACTIONS (1)
  - INTENTIONAL DRUG MISUSE [None]
